FAERS Safety Report 7892958-3 (Version None)
Quarter: 2011Q4

REPORT INFORMATION
  Report Type: 
  Country: None (occurrence: None)
  Receive Date: 20111104
  Receipt Date: 20111026
  Transmission Date: 20120403
  Serious: Yes (Hospitalization, Other)
  Sender: FDA-Public Use
  Company Number: DE-PFIZER INC-2011262762

PATIENT
  Age: 37 Year
  Sex: Male

DRUGS (4)
  1. HALOPERIDOL [Suspect]
     Dosage: 10 MG, PER DAY
  2. RISPERIDONE [Suspect]
     Indication: PSYCHOTIC DISORDER
     Dosage: 2 MG, PER DAY
  3. OLANZAPINE [Suspect]
  4. RISPERIDONE [Suspect]
     Dosage: 6 MG, PER DAY

REACTIONS (2)
  - EXTRAPYRAMIDAL DISORDER [None]
  - HEPATITIS CHOLESTATIC [None]
